FAERS Safety Report 15324420 (Version 2)
Quarter: 2018Q3

REPORT INFORMATION
  Report Type: Report from Study
  Country: CN (occurrence: CN)
  Receive Date: 20180828
  Receipt Date: 20180911
  Transmission Date: 20181010
  Serious: No
  Sender: FDA-Public Use
  Company Number: CN-ASTRAZENECA-2018SF08278

PATIENT
  Age: 47 Year
  Sex: Male

DRUGS (3)
  1. LIRAGLUTIDE [Concomitant]
     Active Substance: LIRAGLUTIDE
  2. BYDUREON [Suspect]
     Active Substance: EXENATIDE
     Indication: DIABETES MELLITUS
     Dosage: UNKNOWN, ONCE A WEEK
     Route: 058
  3. INSULIN ASPART [Concomitant]
     Active Substance: INSULIN ASPART

REACTIONS (2)
  - Injection site induration [Not Recovered/Not Resolved]
  - Injection site pruritus [Recovered/Resolved]
